FAERS Safety Report 5392638-2 (Version None)
Quarter: 2007Q3

REPORT INFORMATION
  Report Type: 
  Country: None (occurrence: None)
  Receive Date: 20070720
  Receipt Date: 20070710
  Transmission Date: 20080115
  Serious: Yes (Hospitalization)
  Sender: FDA-Public Use
  Company Number: CG-MERCK-0707USA01850

PATIENT
  Age: 19 Year
  Sex: Male

DRUGS (1)
  1. STROMECTOL [Suspect]
     Route: 048
     Dates: start: 20070408, end: 20070408

REACTIONS (6)
  - ARTHRALGIA [None]
  - ASTHENIA [None]
  - COMA [None]
  - HYPOTENSION [None]
  - PYREXIA [None]
  - VERTIGO [None]
